FAERS Safety Report 5920494-X (Version None)
Quarter: 2008Q4

REPORT INFORMATION
  Report Type: 
  Country: None (occurrence: None)
  Receive Date: 20081016
  Receipt Date: 20081014
  Transmission Date: 20090506
  Serious: Yes (Death)
  Sender: FDA-Public Use
  Company Number: A0752228A

PATIENT
  Age: 71 Year
  Sex: Male
  Weight: 47 kg

DRUGS (10)
  1. SERETIDE [Suspect]
     Route: 055
     Dates: start: 20070601, end: 20080515
  2. PANTOPRAZOL [Concomitant]
     Dates: start: 20060101, end: 20080515
  3. FUROSEMIDE + SPIRONOLACTONE [Concomitant]
     Dates: start: 20070401, end: 20080515
  4. BALCOR [Concomitant]
     Dates: start: 20070901, end: 20080201
  5. DIGOXIN [Concomitant]
     Dates: start: 20080201, end: 20080515
  6. RIVOTRIL [Concomitant]
     Dates: start: 20071201, end: 20080201
  7. HYDROCHLOROTHIAZIDE [Concomitant]
     Dates: start: 20080201, end: 20080515
  8. BAMIFIX [Concomitant]
     Dates: start: 20080201, end: 20080515
  9. CIPROFLOXACIN [Concomitant]
     Dates: start: 20071201
  10. QUINOFLOX [Concomitant]
     Dates: start: 20070901, end: 20080101

REACTIONS (1)
  - SEPTIC SHOCK [None]
